FAERS Safety Report 7408346-X (Version None)
Quarter: 2011Q2

REPORT INFORMATION
  Report Type: 
  Country: None (occurrence: None)
  Receive Date: 20110412
  Receipt Date: 20110408
  Transmission Date: 20111010
  Serious: Yes (Death, Hospitalization, Other)
  Sender: FDA-Public Use
  Company Number: GB-SANOFI-AVENTIS-2011SA021093

PATIENT
  Age: 63 Year
  Sex: Female

DRUGS (5)
  1. DEXAMETHASONE [Concomitant]
  2. OXALIPLATIN [Suspect]
     Route: 042
     Dates: start: 20101126, end: 20101126
  3. XELODA [Suspect]
     Route: 048
     Dates: start: 20101126, end: 20101209
  4. PARACETAMOL [Concomitant]
     Indication: PAIN
  5. OMEPRAZOLE [Concomitant]
     Indication: ANTACID THERAPY

REACTIONS (5)
  - NEUTROPENIC SEPSIS [None]
  - DEHYDRATION [None]
  - THROMBOCYTOPENIA [None]
  - COLITIS [None]
  - RENAL FAILURE ACUTE [None]
